FAERS Safety Report 7174845-1 (Version None)
Quarter: 2010Q4

REPORT INFORMATION
  Report Type: 
  Country: None (occurrence: None)
  Receive Date: 20101219
  Receipt Date: 20100712
  Transmission Date: 20110411
  Serious: No
  Sender: FDA-Public Use
  Company Number: US-AMGEN-KDL403788

PATIENT

DRUGS (3)
  1. ENBREL [Suspect]
     Indication: RHEUMATOID ARTHRITIS
     Dosage: 25 MG, 2 TIMES/WK
     Route: 058
     Dates: start: 20090313
  2. LEFLUNOMIDE [Concomitant]
     Dosage: 10 MG, QD
     Route: 048
     Dates: start: 20080201
  3. METHOTREXATE [Concomitant]
     Dosage: 20 MG, QWK
     Route: 048
     Dates: start: 20051001

REACTIONS (7)
  - ARTHRALGIA [None]
  - ERYTHEMA [None]
  - INJECTION SITE HAEMATOMA [None]
  - NASOPHARYNGITIS [None]
  - RASH [None]
  - SWELLING FACE [None]
  - TREMOR [None]
